FAERS Safety Report 13176570 (Version 1)
Quarter: 2017Q1

REPORT INFORMATION
  Report Type: Report from Study
  Country: DE (occurrence: CO)
  Receive Date: 20170201
  Receipt Date: 20170201
  Transmission Date: 20170428
  Serious: Yes (Death, Hospitalization, Other)
  Sender: FDA-Public Use
  Company Number: DE-ACTELION-A-US2017-149339

PATIENT
  Age: 65 Year
  Sex: Female

DRUGS (1)
  1. VENTAVIS [Suspect]
     Active Substance: ILOPROST
     Indication: PULMONARY ARTERIAL HYPERTENSION
     Dosage: 6DF, QD
     Route: 055
     Dates: start: 20121019

REACTIONS (2)
  - Cardio-respiratory arrest [Fatal]
  - Infarction [Recovered/Resolved]

NARRATIVE: CASE EVENT DATE: 20161218
